FAERS Safety Report 5517482-4 (Version None)
Quarter: 2007Q4

REPORT INFORMATION
  Report Type: 
  Country: None (occurrence: None)
  Receive Date: 20071114
  Receipt Date: 20071106
  Transmission Date: 20080405
  Serious: Yes (Hospitalization)
  Sender: FDA-Public Use
  Company Number: BR-PFIZER INC-2007033605

PATIENT
  Age: 38 Year
  Sex: Male

DRUGS (5)
  1. FRONTAL [Suspect]
     Indication: SLEEP DISORDER
     Route: 048
  2. ALL OTHER THERAPEUTIC PRODUCTS [Suspect]
     Route: 050
  3. POLIVITAMINICO [Concomitant]
     Dosage: TEXT:UNKNOWN
     Route: 048
  4. DRUG, UNSPECIFIED [Concomitant]
  5. VITAMINS [Concomitant]

REACTIONS (7)
  - ASTHENIA [None]
  - INCREASED UPPER AIRWAY SECRETION [None]
  - INFLUENZA [None]
  - NIGHT SWEATS [None]
  - SEDATION [None]
  - URINARY TRACT INFECTION [None]
  - VIRAL INFECTION [None]
